FAERS Safety Report 7216848-4 (Version None)
Quarter: 2011Q1

REPORT INFORMATION
  Report Type: 
  Country: None (occurrence: None)
  Receive Date: 20110104
  Receipt Date: 20110104
  Transmission Date: 20110831
  Serious: Yes (Hospitalization)
  Sender: FDA-Public Use
  Company Number: None

PATIENT
  Sex: Female
  Weight: 61.2356 kg

DRUGS (2)
  1. NOT SURE 100 MG [Suspect]
     Indication: MIGRAINE
     Dosage: 100 MG DAILY PO
     Route: 048
     Dates: start: 20090901, end: 20101221
  2. TOPAMAX [Suspect]
     Indication: MIGRAINE
     Dosage: 25 MG 2 BID PO YRS
     Route: 048
     Dates: start: 20060101, end: 20080101

REACTIONS (8)
  - MYALGIA [None]
  - SOMNOLENCE [None]
  - CONFUSIONAL STATE [None]
  - METABOLIC ACIDOSIS [None]
  - AMNESIA [None]
  - HEADACHE [None]
  - INFLUENZA LIKE ILLNESS [None]
  - ARTHRALGIA [None]
